FAERS Safety Report 14632579 (Version 1)
Quarter: 2018Q1

REPORT INFORMATION
  Report Type: Spontaneous
  Country: SG (occurrence: SG)
  Receive Date: 20180313
  Receipt Date: 20180313
  Transmission Date: 20180509
  Serious: Yes (Other)
  Sender: FDA-Public Use
  Company Number: SG-BAYER-2018-042316

PATIENT
  Age: 54 Year
  Sex: Female

DRUGS (1)
  1. CIPROFLOXACIN. [Suspect]
     Active Substance: CIPROFLOXACIN

REACTIONS (2)
  - Rhonchi [Unknown]
  - Rash [Unknown]

NARRATIVE: CASE EVENT DATE: 20180126
